FAERS Safety Report 8458876-7 (Version None)
Quarter: 2012Q2

REPORT INFORMATION
  Report Type: 
  Country: None (occurrence: None)
  Receive Date: 20120622
  Receipt Date: 20120608
  Transmission Date: 20120825
  Serious: Yes (Death, Life-Threatening, Hospitalization, Other)
  Sender: FDA-Public Use
  Company Number: US-ROCHE-1027347

PATIENT
  Sex: Female
  Weight: 109.6 kg

DRUGS (3)
  1. INSULIN [Concomitant]
  2. LOVENOX [Concomitant]
  3. ZELBORAF [Suspect]
     Indication: MALIGNANT MELANOMA
     Route: 048
     Dates: start: 20111220, end: 20120220

REACTIONS (8)
  - PNEUMONIA [None]
  - LEUKOPENIA [None]
  - SUPERIOR VENA CAVA SYNDROME [None]
  - HUMERUS FRACTURE [None]
  - DEATH [None]
  - LUNG NEOPLASM MALIGNANT [None]
  - ACUTE RESPIRATORY FAILURE [None]
  - ELECTROCARDIOGRAM QT PROLONGED [None]
